FAERS Safety Report 7087371-5 (Version None)
Quarter: 2010Q4

REPORT INFORMATION
  Report Type: 
  Country: None (occurrence: None)
  Receive Date: 20101108
  Receipt Date: 20101027
  Transmission Date: 20110411
  Serious: Yes (Hospitalization)
  Sender: FDA-Public Use
  Company Number: JP-BIOGENIDEC-2010BI035972

PATIENT
  Sex: Female

DRUGS (7)
  1. AVONEX [Suspect]
     Indication: SECONDARY PROGRESSIVE MULTIPLE SCLEROSIS
     Route: 030
     Dates: start: 20090622, end: 20090803
  2. IMURAN [Concomitant]
     Dates: start: 20080901, end: 20090804
  3. GABAPEN [Concomitant]
     Dates: start: 20090617
  4. RIVOTRIL [Concomitant]
     Dates: start: 20090608
  5. OMEPRAL [Concomitant]
     Dates: start: 20090530
  6. SELBEX [Concomitant]
     Dates: start: 20090608
  7. GLAKAY [Concomitant]
     Dates: start: 20090604

REACTIONS (2)
  - GRANULOCYTE COUNT DECREASED [None]
  - MULTIPLE SCLEROSIS RELAPSE [None]
